FAERS Safety Report 5938000-2 (Version None)
Quarter: 2008Q4

REPORT INFORMATION
  Report Type: 
  Country: None (occurrence: None)
  Receive Date: 20081031
  Receipt Date: 20081022
  Transmission Date: 20090506
  Serious: Yes (Life-Threatening)
  Sender: FDA-Public Use
  Company Number: JP-PFIZER INC-2008083240

PATIENT
  Sex: Female
  Weight: 58 kg

DRUGS (13)
  1. HALCION [Suspect]
     Indication: PERSONALITY DISORDER
     Route: 048
     Dates: start: 20080812
  2. HALCION [Suspect]
     Indication: ALCOHOLISM
  3. DESYREL [Suspect]
     Indication: PERSONALITY DISORDER
     Route: 048
     Dates: start: 20080812
  4. DESYREL [Suspect]
     Indication: ALCOHOLISM
  5. LOXOPROFEN SODIUM [Suspect]
     Indication: BACK PAIN
     Route: 048
     Dates: start: 20080822, end: 20080827
  6. COLICOOL [Concomitant]
     Dosage: TEXT:1 TABLETS THREE TIMES DAILY
     Route: 048
  7. LUVOX [Concomitant]
     Route: 048
     Dates: start: 20080812, end: 20080922
  8. RIZE [Concomitant]
     Route: 048
     Dates: start: 20080812, end: 20080922
  9. ANTIPSYCHOTICS [Concomitant]
  10. DEPAKENE [Concomitant]
     Route: 048
     Dates: start: 20061013, end: 20080922
  11. MYSLEE [Concomitant]
     Route: 048
     Dates: start: 20080404, end: 20080922
  12. MEILAX [Concomitant]
     Route: 048
     Dates: start: 20080812, end: 20080922
  13. KEFLEX [Concomitant]
     Route: 048
     Dates: start: 20080913, end: 20080915

REACTIONS (1)
  - LIVER DISORDER [None]
